FAERS Safety Report 8084881-9 (Version None)
Quarter: 2012Q1

REPORT INFORMATION
  Report Type: 
  Country: None (occurrence: None)
  Receive Date: 20120128
  Receipt Date: 20110318
  Transmission Date: 20120608
  Serious: No
  Sender: FDA-Public Use
  Company Number: US-ABBOTT-11P-163-0712779-00

PATIENT
  Sex: Female
  Weight: 88.076 kg

DRUGS (3)
  1. HUMIRA [Suspect]
     Indication: RHEUMATOID ARTHRITIS
     Dates: start: 20070101
  2. AZOR [Concomitant]
     Indication: BLOOD PRESSURE
  3. METFFORMIN HYDROCHLORIDE [Concomitant]
     Indication: DIABETES MELLITUS

REACTIONS (2)
  - PRURITUS [None]
  - INFLAMMATION [None]
